FAERS Safety Report 14149551 (Version 2)
Quarter: 2018Q1

REPORT INFORMATION
  Report Type: Spontaneous
  Country: US (occurrence: US)
  Receive Date: 20171101
  Receipt Date: 20180228
  Transmission Date: 20180508
  Serious: Yes (Disabling, Other)
  Sender: FDA-Public Use
  Company Number: US-TEVA-819970USA

PATIENT
  Age: 52 Year
  Sex: Female

DRUGS (1)
  1. ZECUITY [Suspect]
     Active Substance: SUMATRIPTAN SUCCINATE
     Indication: MIGRAINE
     Dosage: APPLY ONE PATCH PRN FOR MIGRAINE HA
     Route: 062

REACTIONS (2)
  - Application site scar [Not Recovered/Not Resolved]
  - Application site burn [Unknown]
